FAERS Safety Report 6554030-4 (Version None)
Quarter: 2010Q1

REPORT INFORMATION
  Report Type: 
  Country: None (occurrence: None)
  Receive Date: 20100127
  Receipt Date: 20100120
  Transmission Date: 20100710
  Serious: Yes (Hospitalization)
  Sender: FDA-Public Use
  Company Number: IT-TEVA-221694ISR

PATIENT
  Sex: Male

DRUGS (6)
  1. VINCRISTINE [Suspect]
     Indication: B-CELL LYMPHOMA STAGE IV
     Route: 042
     Dates: start: 20090716, end: 20091012
  2. RITUXIMAB [Suspect]
     Indication: B-CELL LYMPHOMA STAGE IV
     Route: 042
     Dates: start: 20090716, end: 20091102
  3. CYCLOPHOSPHAMIDE [Suspect]
     Indication: B-CELL LYMPHOMA STAGE IV
     Route: 042
     Dates: start: 20090716, end: 20091012
  4. DOXORUBICIN HCL [Suspect]
     Indication: B-CELL LYMPHOMA STAGE IV
     Route: 042
     Dates: start: 20090716, end: 20091012
  5. METHOTREXATE [Suspect]
     Indication: B-CELL LYMPHOMA STAGE IV
     Route: 037
     Dates: start: 20090716, end: 20090930
  6. DEXAMETHASONE SODIUM PHOSPHATE [Suspect]
     Indication: B-CELL LYMPHOMA STAGE IV
     Route: 037
     Dates: start: 20090716, end: 20091012

REACTIONS (3)
  - HEMIPLEGIA [None]
  - PROGRESSIVE MULTIFOCAL LEUKOENCEPHALOPATHY [None]
  - VISUAL ACUITY REDUCED [None]
